FAERS Safety Report 10548498 (Version 1)
Quarter: 2014Q4

REPORT INFORMATION
  Report Type: Spontaneous
  Country: US (occurrence: US)
  Receive Date: 20141028
  Receipt Date: 20141028
  Transmission Date: 20150529
  Serious: Yes (Other)
  Sender: FDA-Public Use
  Company Number: US-MYLANLABS-2014S1011661

PATIENT
  Age: 80 Year
  Sex: Male
  Weight: 63.5 kg

DRUGS (1)
  1. CARBIDOPA AND LEVODOPA EXTENDED RELEASE [Suspect]
     Active Substance: CARBIDOPA\LEVODOPA
     Indication: PARKINSON^S DISEASE
     Dosage: 25 MG,QID
     Route: 048
     Dates: start: 2013, end: 20140511

REACTIONS (2)
  - Drug ineffective [Recovering/Resolving]
  - Parkinson^s disease [Recovering/Resolving]

NARRATIVE: CASE EVENT DATE: 20140506
